FAERS Safety Report 20239910 (Version 1)
Quarter: 2021Q4

REPORT INFORMATION
  Report Type: Spontaneous
  Country: US (occurrence: None)
  Receive Date: 20211227
  Receipt Date: 20211227
  Transmission Date: 20220304
  Serious: Yes (Hospitalization)
  Sender: FDA-Public Use
  Company Number: None

PATIENT
  Sex: Female

DRUGS (2)
  1. BENLYSTA [Suspect]
     Active Substance: BELIMUMAB
     Indication: Systemic lupus erythematosus
     Dosage: FREQUENCY : WEEKLY;?
     Route: 058
     Dates: start: 20210730
  2. BENLYSTA [Suspect]
     Active Substance: BELIMUMAB
     Dosage: OTHER QUANTITY : 1 PEN;?FREQUENCY : WEEKLY;?
     Route: 058

REACTIONS (6)
  - Therapy interrupted [None]
  - Respiratory tract infection [None]
  - Rash macular [None]
  - Skin burning sensation [None]
  - Pruritus [None]
  - Pain [None]
